FAERS Safety Report 6116942-5 (Version None)
Quarter: 2009Q1

REPORT INFORMATION
  Report Type: 
  Country: None (occurrence: None)
  Receive Date: 20090314
  Receipt Date: 20081229
  Transmission Date: 20090719
  Serious: No
  Sender: FDA-Public Use
  Company Number: US-ABBOTT-08P-163-0495218-00

PATIENT
  Sex: Female
  Weight: 62.652 kg

DRUGS (5)
  1. HUMIRA [Suspect]
     Indication: ANKYLOSING SPONDYLITIS
     Route: 058
     Dates: start: 20080501
  2. IMITREX [Concomitant]
     Indication: MIGRAINE
     Route: 048
  3. AMBIEN [Concomitant]
     Indication: INSOMNIA
     Dosage: PT. BREAKS TAB IN 1/2
     Route: 048
  4. PERCOCET [Concomitant]
     Indication: MIGRAINE
     Dosage: 325/5MG  PT. BREAKS TAB IN 1/2
     Route: 048
  5. IMITREX [Concomitant]
     Dosage: 6MG INJECTION SQ
     Route: 058

REACTIONS (3)
  - DRUG DELIVERY SYSTEM MALFUNCTION [None]
  - INCORRECT DOSE ADMINISTERED [None]
  - INJECTION SITE HAEMORRHAGE [None]
